FAERS Safety Report 23060103 (Version 1)
Quarter: 2023Q4

REPORT INFORMATION
  Report Type: Spontaneous
  Country: CO (occurrence: None)
  Receive Date: 20231012
  Receipt Date: 20231012
  Transmission Date: 20240109
  Serious: Yes (Other)
  Sender: FDA-Public Use
  Company Number: 2023A220601

PATIENT
  Age: 62 Year
  Sex: Male

DRUGS (1)
  1. XIGDUO XR [Suspect]
     Active Substance: DAPAGLIFLOZIN PROPANEDIOL\METFORMIN HYDROCHLORIDE
     Indication: Type 2 diabetes mellitus
     Dosage: 1010 MG
     Route: 048

REACTIONS (4)
  - Penis disorder [Recovered/Resolved]
  - Pain [Recovered/Resolved]
  - Candida infection [Recovered/Resolved]
  - Balanoposthitis [Recovered/Resolved]
